FAERS Safety Report 14290386 (Version 4)
Quarter: 2018Q1

REPORT INFORMATION
  Report Type: Spontaneous
  Country: NL (occurrence: NL)
  Receive Date: 20171215
  Receipt Date: 20180125
  Transmission Date: 20180509
  Serious: Yes (Death, Other)
  Sender: FDA-Public Use
  Company Number: NL-AMGEN-NLDSP2017184998

PATIENT
  Age: 12 Year
  Sex: Female
  Weight: 36.9 kg

DRUGS (4)
  1. BLINCYTO [Suspect]
     Active Substance: BLINATUMOMAB
     Dosage: 15 MUG/M2, UNK
     Route: 042
     Dates: start: 20170725, end: 20170815
  2. BLINCYTO [Suspect]
     Active Substance: BLINATUMOMAB
     Indication: ACUTE LYMPHOCYTIC LEUKAEMIA RECURRENT
     Dosage: 5 MUG/M2, UNK
     Route: 042
     Dates: start: 20170718, end: 20170724
  3. METHOTREXATE SODIUM. [Concomitant]
     Active Substance: METHOTREXATE SODIUM
     Dosage: UNK
     Dates: start: 20170505, end: 20170601
  4. INOTUZUMAB OZOGAMICIN [Suspect]
     Active Substance: INOTUZUMAB OZOGAMICIN
     Indication: ACUTE LYMPHOCYTIC LEUKAEMIA RECURRENT
     Dosage: 0.450 MG, (CUM DOSE 3.025 MG)UNK
     Route: 065
     Dates: start: 20170510, end: 20170620

REACTIONS (6)
  - Bone marrow failure [Not Recovered/Not Resolved]
  - Sepsis [Fatal]
  - Multiple organ dysfunction syndrome [Fatal]
  - Febrile neutropenia [Unknown]
  - Venoocclusive liver disease [Not Recovered/Not Resolved]
  - Stenotrophomonas infection [Unknown]

NARRATIVE: CASE EVENT DATE: 20170718
